FAERS Safety Report 10057280 (Version 1)
Quarter: 2014Q2

REPORT INFORMATION
  Report Type: Spontaneous
  Country: ES (occurrence: ES)
  Receive Date: 20140403
  Receipt Date: 20140403
  Transmission Date: 20141212
  Serious: Yes (Hospitalization)
  Sender: FDA-Public Use
  Company Number: PHHY2014ES040082

PATIENT
  Age: 45 Year
  Sex: Male

DRUGS (5)
  1. METHYLPHENIDATE [Suspect]
     Dosage: 30 DF/DAY (AT 10 MG FOR SEVERAL MONTHS)
     Route: 042
  2. CLONAZEPAM [Suspect]
     Dosage: 6 MG/DAY
  3. AMISULPRIDE [Suspect]
     Dosage: 800 MG/PER DAY
  4. METHADONE [Suspect]
     Dosage: 35 MG/DAY
  5. OLANZAPINE [Suspect]
     Dosage: 10 MG/ DAY

REACTIONS (22)
  - Somatic delusion [Unknown]
  - Anxiety [Unknown]
  - Skin lesion [Unknown]
  - Ulcer [Unknown]
  - Emotional distress [Unknown]
  - Neglect of personal appearance [Unknown]
  - Speech disorder [Unknown]
  - Delirium [Not Recovered/Not Resolved]
  - Emotional disorder [Recovering/Resolving]
  - Delusion [Unknown]
  - Hallucination, visual [Unknown]
  - Decreased appetite [Unknown]
  - Insomnia [Unknown]
  - Pyrexia [Recovered/Resolved]
  - Cough [Recovering/Resolving]
  - Dyspnoea [Recovering/Resolving]
  - Infection [Unknown]
  - Pneumonia [Unknown]
  - Infestation [Not Recovered/Not Resolved]
  - Toxicity to various agents [Unknown]
  - Drug dependence [Unknown]
  - Drug abuse [Unknown]
